FAERS Safety Report 9738305 (Version 1)
Quarter: 2013Q4

REPORT INFORMATION
  Report Type: Spontaneous
  Country: US (occurrence: US)
  Receive Date: 20131208
  Receipt Date: 20131208
  Transmission Date: 20140711
  Serious: No
  Sender: FDA-Public Use
  Company Number: US-SANOFI-AVENTIS-2013SA063472

PATIENT
  Sex: 0

DRUGS (1)
  1. FERRLECIT [Suspect]

REACTIONS (5)
  - Extravasation [Unknown]
  - Injection site reaction [Unknown]
  - Tenderness [Unknown]
  - Musculoskeletal stiffness [Unknown]
  - Injection site swelling [Unknown]
